FAERS Safety Report 9518478 (Version 1)
Quarter: 2013Q3

REPORT INFORMATION
  Report Type: Spontaneous
  Country: US (occurrence: US)
  Receive Date: 20130912
  Receipt Date: 20130912
  Transmission Date: 20140515
  Serious: No
  Sender: FDA-Public Use
  Company Number: US-009507513-1308USA014336

PATIENT
  Age: 22 Year
  Sex: Female
  Weight: 88.89 kg

DRUGS (2)
  1. NEXPLANON [Suspect]
     Indication: CONTRACEPTION
     Dosage: 1 ROD, UNK
     Route: 059
     Dates: start: 20130814
  2. PROAIR (ALBUTEROL SULFATE) [Concomitant]

REACTIONS (3)
  - Implant site infection [Recovering/Resolving]
  - Device expulsion [Recovered/Resolved]
  - Medication error [Unknown]
